FAERS Safety Report 10039428 (Version 1)
Quarter: 2014Q1

REPORT INFORMATION
  Report Type: Spontaneous
  Country: US (occurrence: None)
  Receive Date: 20140324
  Receipt Date: 20140324
  Transmission Date: 20141002
  Serious: Yes (Death)
  Sender: FDA-Public Use
  Company Number: US-MDCO-14-00068

PATIENT
  Age: 64 Year
  Sex: Male

DRUGS (2)
  1. ANGIOMAX [Suspect]
     Indication: PERCUTANEOUS CORONARY INTERVENTION
     Dates: start: 20140314, end: 20140314
  2. EPINEPHRINE [Concomitant]
     Dates: start: 20140314

REACTIONS (4)
  - Chest pain [None]
  - Blood creatinine increased [None]
  - Acute myocardial infarction [None]
  - Cardiac arrest [None]
